FAERS Safety Report 14171910 (Version 4)
Quarter: 2018Q1

REPORT INFORMATION
  Report Type: Report from Study
  Country: US (occurrence: US)
  Receive Date: 20171108
  Receipt Date: 20180302
  Transmission Date: 20180508
  Serious: Yes (Other)
  Sender: FDA-Public Use
  Company Number: US-AMGEN-USASL2017151472

PATIENT
  Age: 54 Year
  Sex: Female
  Weight: 58.5 kg

DRUGS (4)
  1. REPATHA [Suspect]
     Active Substance: EVOLOCUMAB
     Dosage: 420 MG/3.5ML, QMO
     Route: 058
     Dates: start: 20170612, end: 201708
  2. REPATHA [Suspect]
     Active Substance: EVOLOCUMAB
     Indication: HYPERLIPIDAEMIA
     Dosage: 140 MG, Q2WK
     Route: 058
  3. WELCHOL [Concomitant]
     Active Substance: COLESEVELAM HYDROCHLORIDE
     Dosage: 60 MG, BID
     Dates: start: 20170822
  4. NIACIN. [Concomitant]
     Active Substance: NIACIN
     Indication: HYPERLIPIDAEMIA
     Dosage: 500 MG, QD

REACTIONS (3)
  - Cognitive disorder [Recovered/Resolved]
  - Depression [Recovered/Resolved]
  - Drug effect incomplete [Unknown]
